FAERS Safety Report 7768516-8 (Version None)
Quarter: 2011Q3

REPORT INFORMATION
  Report Type: 
  Country: None (occurrence: None)
  Receive Date: 20110922
  Receipt Date: 20100824
  Transmission Date: 20111222
  Serious: No
  Sender: FDA-Public Use
  Company Number: US-ASTRAZENECA-2010SE29211

PATIENT
  Age: 8010 Day
  Sex: Female
  Weight: 72.6 kg

DRUGS (2)
  1. SEROQUEL [Suspect]
     Route: 048
  2. SEROQUEL [Suspect]
     Route: 048
     Dates: start: 20091101, end: 20100615

REACTIONS (3)
  - LOSS OF EMPLOYMENT [None]
  - INSOMNIA [None]
  - DRUG DOSE OMISSION [None]
